FAERS Safety Report 16551135 (Version 2)
Quarter: 2019Q3

REPORT INFORMATION
  Report Type: Report from Study
  Country: AU (occurrence: AU)
  Receive Date: 20190710
  Receipt Date: 20190718
  Transmission Date: 20191004
  Serious: Yes (Hospitalization, Other)
  Sender: FDA-Public Use
  Company Number: AU-ROCHE-1945358

PATIENT
  Age: 70 Year
  Sex: Male
  Weight: 115 kg

DRUGS (2)
  1. ACTEMRA [Suspect]
     Active Substance: TOCILIZUMAB
     Route: 042
     Dates: start: 20170801
  2. ACTEMRA [Suspect]
     Active Substance: TOCILIZUMAB
     Indication: RHEUMATOID ARTHRITIS
     Dosage: NOT HAD ACTEMRA PRIOR TO THIS DATE
     Route: 041
     Dates: start: 20161013

REACTIONS (7)
  - Atrial fibrillation [Recovered/Resolved with Sequelae]
  - Schizophrenia [Unknown]
  - Productive cough [Recovered/Resolved]
  - Lower respiratory tract infection [Recovered/Resolved]
  - Gastrooesophageal reflux disease [Unknown]
  - Hypertension [Unknown]
  - Pneumonia [Recovered/Resolved]

NARRATIVE: CASE EVENT DATE: 20170214
